FAERS Safety Report 16666271 (Version 2)
Quarter: 2019Q3

REPORT INFORMATION
  Report Type: Spontaneous
  Country: US (occurrence: US)
  Receive Date: 20190805
  Receipt Date: 20190809
  Transmission Date: 20191004
  Serious: No
  Sender: FDA-Public Use
  Company Number: US-JNJFOC-20190742658

PATIENT
  Sex: Female
  Weight: 42.22 kg

DRUGS (1)
  1. BENADRYL ALLERGY ULTRATAB [Suspect]
     Active Substance: DIPHENHYDRAMINE HYDROCHLORIDE
     Indication: MULTIPLE ALLERGIES
     Dosage: 1 PILL FOUR TO 5 TIMES A WEEK, BENADRYL ALLERGY ULTRATAB 48S
     Route: 048

REACTIONS (1)
  - Drug screen false positive [Unknown]
